FAERS Safety Report 4845205-0 (Version None)
Quarter: 2005Q4

REPORT INFORMATION
  Report Type: 
  Country: None (occurrence: None)
  Receive Date: 20051125
  Receipt Date: 20051116
  Transmission Date: 20060501
  Serious: Yes (Other)
  Sender: FDA-Public Use
  Company Number: 2005131092

PATIENT
  Sex: Male

DRUGS (2)
  1. LIPITOR [Suspect]
     Dates: start: 20010101
  2. NORVASC [Suspect]
     Indication: HYPERTENSION
     Dates: start: 20010101

REACTIONS (4)
  - AORTIC ANEURYSM [None]
  - CAROTID ARTERY DISEASE [None]
  - CATARACT [None]
  - PAPILLOMA [None]
